FAERS Safety Report 8067724-9 (Version None)
Quarter: 2012Q1

REPORT INFORMATION
  Report Type: 
  Country: None (occurrence: None)
  Receive Date: 20120124
  Receipt Date: 20120112
  Transmission Date: 20120608
  Serious: Yes (Other)
  Sender: FDA-Public Use
  Company Number: ZA-ABBOTT-11P-143-0885919-03

PATIENT
  Age: 13 Year
  Sex: Male
  Weight: 39.7 kg

DRUGS (9)
  1. LAMIVUDINE [Concomitant]
     Dates: end: 20100811
  2. LAMIVUDINE [Concomitant]
     Indication: HIV INFECTION
     Route: 048
     Dates: start: 20060413
  3. ATAZANAVIR [Concomitant]
  4. RITONAVIR [Suspect]
  5. STAVUDINE [Concomitant]
     Indication: HIV INFECTION
     Route: 048
     Dates: start: 20060413
  6. MULTI-VITAMIN [Concomitant]
     Indication: PRODUCT USED FOR UNKNOWN INDICATION
     Dates: start: 20050606
  7. STAVUDINE [Concomitant]
  8. RITONAVIR [Suspect]
     Indication: HIV INFECTION
     Route: 048
     Dates: start: 20060413
  9. ATAZANAVIR [Concomitant]
     Indication: HIV INFECTION
     Route: 048
     Dates: start: 20060413

REACTIONS (3)
  - BLOOD BILIRUBIN INCREASED [None]
  - PROTEINURIA [None]
  - BLOOD BILIRUBIN UNCONJUGATED INCREASED [None]
